FAERS Safety Report 15156295 (Version 1)
Quarter: 2018Q3

REPORT INFORMATION
  Report Type: Spontaneous
  Country: US (occurrence: US)
  Receive Date: 20180717
  Receipt Date: 20180717
  Transmission Date: 20181010
  Serious: Yes (Other)
  Sender: FDA-Public Use
  Company Number: US-SHIRE-US201825641

PATIENT
  Age: 75 Year
  Sex: Female

DRUGS (1)
  1. GATTEX [Suspect]
     Active Substance: TEDUGLUTIDE\WATER
     Indication: SHORT-BOWEL SYNDROME
     Dosage: 0.367 UNK, 1X/DAY:QD
     Route: 065
     Dates: start: 20170921, end: 20180416

REACTIONS (1)
  - Calciphylaxis [Unknown]

NARRATIVE: CASE EVENT DATE: 20180416
